FAERS Safety Report 8556312-3 (Version None)
Quarter: 2012Q3

REPORT INFORMATION
  Report Type: 
  Country: None (occurrence: None)
  Receive Date: 20120801
  Receipt Date: 20120726
  Transmission Date: 20120928
  Serious: No
  Sender: FDA-Public Use
  Company Number: US-PFIZER INC-2012182503

PATIENT
  Sex: Female

DRUGS (2)
  1. LEVOTHYROXINE SODIUM [Suspect]
     Dosage: UNK
  2. LEVOXYL [Suspect]
     Dosage: 25 UG, UNK

REACTIONS (1)
  - HEART RATE INCREASED [None]
